FAERS Safety Report 4805428-3 (Version None)
Quarter: 2005Q4

REPORT INFORMATION
  Report Type: 
  Country: None (occurrence: None)
  Receive Date: 20051018
  Receipt Date: 20051005
  Transmission Date: 20060501
  Serious: Yes (Hospitalization)
  Sender: FDA-Public Use
  Company Number: 2005141296

PATIENT
  Sex: Male

DRUGS (2)
  1. IRINOTECAN HCL [Suspect]
     Indication: GALLBLADDER CANCER
     Dosage: (1 IN 2 WK), INTRAVENOUS
     Route: 042
     Dates: start: 20050714, end: 20050728
  2. GEMZAR [Concomitant]

REACTIONS (1)
  - INTERSTITIAL LUNG DISEASE [None]
